FAERS Safety Report 8505745-X (Version None)
Quarter: 2012Q3

REPORT INFORMATION
  Report Type: 
  Country: None (occurrence: None)
  Receive Date: 20120712
  Receipt Date: 20120705
  Transmission Date: 20120928
  Serious: Yes (Hospitalization)
  Sender: FDA-Public Use
  Company Number: PHHO2012US007696

PATIENT
  Sex: Male
  Weight: 73.5 kg

DRUGS (7)
  1. INTERFERON BETA-1A [Suspect]
     Indication: RELAPSING-REMITTING MULTIPLE SCLEROSIS
  2. LOVAZA [Concomitant]
     Indication: SUPPLEMENTATION THERAPY
     Dosage: 1 DF, QD
     Route: 048
     Dates: start: 20090101
  3. GILENYA [Suspect]
     Dosage: 0.5 MG, QD
     Route: 048
     Dates: start: 20120530
  4. PRISTIQ [Concomitant]
     Indication: DEPRESSION
     Dosage: 50 MG, QD
     Route: 048
     Dates: start: 20100101
  5. VITAMIN D [Concomitant]
     Indication: SUPPLEMENTATION THERAPY
     Dosage: 400 U, QD
     Route: 048
     Dates: start: 20100101
  6. CRESTOR [Concomitant]
     Indication: DYSLIPIDAEMIA
     Dosage: 100 MG, QD
     Route: 048
     Dates: start: 20120507
  7. GILENYA [Suspect]
     Indication: RELAPSING-REMITTING MULTIPLE SCLEROSIS
     Dosage: 0.5 MG, QD
     Route: 048
     Dates: start: 20120515, end: 20120516

REACTIONS (6)
  - CHILLS [None]
  - NAUSEA [None]
  - PYREXIA [None]
  - HEADACHE [None]
  - PAIN [None]
  - DIARRHOEA [None]
